FAERS Safety Report 4519215-7 (Version None)
Quarter: 2004Q4

REPORT INFORMATION
  Report Type: 
  Country: None (occurrence: None)
  Receive Date: 20041206
  Receipt Date: 20041124
  Transmission Date: 20050328
  Serious: Yes (Death, Hospitalization)
  Sender: FDA-Public Use
  Company Number: TW-MERCK-0411TWN00017

PATIENT
  Age: 67 Year
  Sex: Male

DRUGS (1)
  1. PRIMAXIN [Suspect]
     Indication: SEPSIS
     Route: 051
     Dates: start: 20041110, end: 20041119

REACTIONS (3)
  - CONVULSION [None]
  - DEATH [None]
  - RASH [None]
